FAERS Safety Report 8575629-X (Version None)
Quarter: 2012Q3

REPORT INFORMATION
  Report Type: 
  Country: None (occurrence: None)
  Receive Date: 20120807
  Receipt Date: 20120802
  Transmission Date: 20120928
  Serious: Yes (Other)
  Sender: FDA-Public Use
  Company Number: PHHY2012DE066994

PATIENT
  Sex: Female

DRUGS (1)
  1. CLOZAPINE [Suspect]
     Dosage: 1 DF,
     Route: 048

REACTIONS (3)
  - PROCEDURAL COMPLICATION [None]
  - HYPERTHYROIDISM [None]
  - TACHYCARDIA [None]
